FAERS Safety Report 5835618-2 (Version None)
Quarter: 2008Q3

REPORT INFORMATION
  Report Type: 
  Country: None (occurrence: None)
  Receive Date: 20080806
  Receipt Date: 20080805
  Transmission Date: 20090109
  Serious: Yes (Hospitalization)
  Sender: FDA-Public Use
  Company Number: PHHO2001BR01445

PATIENT
  Sex: Male
  Weight: 52.7 kg

DRUGS (7)
  1. MYCOPHENOLATE MOFETIL [Suspect]
     Indication: RENAL TRANSPLANT
     Dosage: UNK
     Route: 048
     Dates: start: 20001219, end: 20001225
  2. MYCOPHENOLATE MOFETIL [Suspect]
     Dosage: CODE NOT BROKEN
     Dates: start: 20001226, end: 20010101
  3. MYCOPHENOLATE MOFETIL [Suspect]
     Dosage: CODE NOT BROKEN
     Dates: start: 20010102, end: 20010129
  4. MYCOPHENOLATE MOFETIL [Suspect]
     Dosage: CODE NOT BROKEN
     Dates: start: 20010130
  5. NEORAL [Suspect]
     Indication: RENAL TRANSPLANT
     Dosage: 150 MG, UNK
     Route: 048
     Dates: start: 20001101
  6. PREDNISONE TAB [Suspect]
     Indication: RENAL TRANSPLANT
     Dosage: 15 MG, UNK
     Route: 048
     Dates: start: 20001004, end: 20001108
  7. DEFLAZACORT [Suspect]
     Indication: PROPHYLAXIS
     Dosage: 12 MG, UNK
     Route: 048
     Dates: start: 20001124

REACTIONS (1)
  - DIABETES MELLITUS [None]
